FAERS Safety Report 14487560 (Version 1)
Quarter: 2018Q1

REPORT INFORMATION
  Report Type: Spontaneous
  Country: US (occurrence: US)
  Receive Date: 20180205
  Receipt Date: 20180205
  Transmission Date: 20180509
  Serious: No
  Sender: FDA-Public Use
  Company Number: US-TAKEDA-2018TUS002213

PATIENT
  Sex: Female

DRUGS (1)
  1. ENTYVIO [Suspect]
     Active Substance: VEDOLIZUMAB
     Indication: CROHN^S DISEASE
     Dosage: UNK
     Route: 065

REACTIONS (8)
  - Rash [Unknown]
  - Oropharyngeal pain [Unknown]
  - Fatigue [Unknown]
  - Back pain [Unknown]
  - Pain [Unknown]
  - Headache [Unknown]
  - Nausea [Unknown]
  - Arthralgia [Unknown]
